FAERS Safety Report 13568959 (Version 1)
Quarter: 2017Q2

REPORT INFORMATION
  Report Type: Spontaneous
  Country: US (occurrence: US)
  Receive Date: 20170522
  Receipt Date: 20170522
  Transmission Date: 20170830
  Serious: No
  Sender: FDA-Public Use
  Company Number: US-VANDA PHARMACEUTICALS, INC-2016ILOUS001566

PATIENT
  Sex: Female
  Weight: 81.63 kg

DRUGS (4)
  1. ZOLOFT [Concomitant]
     Active Substance: SERTRALINE HYDROCHLORIDE
     Indication: PRODUCT USED FOR UNKNOWN INDICATION
  2. EQUETRO [Concomitant]
     Active Substance: CARBAMAZEPINE
     Indication: PRODUCT USED FOR UNKNOWN INDICATION
  3. EFFEXOR [Concomitant]
     Active Substance: VENLAFAXINE HYDROCHLORIDE
     Indication: PRODUCT USED FOR UNKNOWN INDICATION
  4. FANAPT [Suspect]
     Active Substance: ILOPERIDONE
     Indication: SCHIZOPHRENIA
     Dosage: 2 MG, DAILY
     Route: 048
     Dates: start: 20161014

REACTIONS (1)
  - Back pain [Unknown]
